FAERS Safety Report 9160212 (Version 2)
Quarter: 2013Q1

REPORT INFORMATION
  Report Type: Spontaneous
  Country: SE (occurrence: None)
  Receive Date: 20130219
  Receipt Date: 20130226
  Transmission Date: 20140127
  Serious: Yes (Hospitalization)
  Sender: FDA-Public Use
  Company Number: 7193544

PATIENT
  Age: 48 Year
  Sex: Female

DRUGS (3)
  1. EUTHYROX (LEVOTHYROXINE SODIUM)(TABLET)(LEVOTHYROXINE SODIUM) [Suspect]
     Indication: HYPOTHYROIDISM
     Route: 048
     Dates: start: 2006, end: 201209
  2. LEVAXIN [Suspect]
     Route: 048
     Dates: start: 2006, end: 201209
  3. LIOTHYRONIN (LIOTHYRONINE) [Concomitant]

REACTIONS (27)
  - Aggression [None]
  - Decreased appetite [None]
  - Arthralgia [None]
  - Abdominal pain [None]
  - Disturbance in attention [None]
  - Constipation [None]
  - Depressed mood [None]
  - Dry eye [None]
  - Fatigue [None]
  - Influenza like illness [None]
  - Pain in extremity [None]
  - Feeling abnormal [None]
  - Infection susceptibility increased [None]
  - Pain in jaw [None]
  - Back pain [None]
  - Mucosal dryness [None]
  - Myalgia [None]
  - Sensory loss [None]
  - Musculoskeletal pain [None]
  - Joint swelling [None]
  - Torticollis [None]
  - Feeling hot [None]
  - Urticaria [None]
  - Libido decreased [None]
  - Diarrhoea [None]
  - Fatigue [None]
  - Heart rate increased [None]
